FAERS Safety Report 12851223 (Version 1)
Quarter: 2016Q4

REPORT INFORMATION
  Report Type: Spontaneous
  Country: US (occurrence: US)
  Receive Date: 20161014
  Receipt Date: 20161014
  Transmission Date: 20170207
  Serious: Yes (Hospitalization)
  Sender: FDA-Public Use
  Company Number: None

PATIENT
  Sex: Female
  Weight: 90 kg

DRUGS (1)
  1. NUVIGIL [Suspect]
     Active Substance: ARMODAFINIL
     Dates: end: 20160924

REACTIONS (3)
  - Asthenia [None]
  - Myopathy [None]
  - Deep vein thrombosis [None]

NARRATIVE: CASE EVENT DATE: 20160924
